FAERS Safety Report 6433788-9 (Version None)
Quarter: 2009Q4

REPORT INFORMATION
  Report Type: 
  Country: None (occurrence: None)
  Receive Date: 20091110
  Receipt Date: 20090818
  Transmission Date: 20100525
  Serious: No
  Sender: FDA-Public Use
  Company Number: A0802842A

PATIENT
  Age: 53 Year
  Sex: Female

DRUGS (4)
  1. ALTABAX [Suspect]
     Indication: INFECTION
     Dosage: 1APP SINGLE DOSE
     Route: 061
     Dates: start: 20090815, end: 20090815
  2. BACTROBAN [Suspect]
     Indication: INFECTION
     Dosage: 1APP TWICE PER DAY
     Route: 061
     Dates: start: 20090728
  3. CELLCEPT [Concomitant]
  4. VICODIN [Concomitant]

REACTIONS (3)
  - BACK PAIN [None]
  - BURNING SENSATION [None]
  - DRUG INEFFECTIVE [None]
